FAERS Safety Report 5326948-1 (Version None)
Quarter: 2007Q2

REPORT INFORMATION
  Report Type: 
  Country: None (occurrence: None)
  Receive Date: 20070511
  Receipt Date: 20070427
  Transmission Date: 20071010
  Serious: Yes (Hospitalization)
  Sender: FDA-Public Use
  Company Number: 012928

PATIENT
  Age: 46 Year
  Sex: Male

DRUGS (6)
  1. PRIALT [Suspect]
     Indication: BACK PAIN
     Dosage: SEE IMAGE
     Route: 037
     Dates: start: 20070101, end: 20070101
  2. PRIALT [Suspect]
     Indication: BACK PAIN
     Dosage: SEE IMAGE
     Route: 037
     Dates: start: 20070101, end: 20070101
  3. PRIALT [Suspect]
     Indication: BACK PAIN
     Dosage: SEE IMAGE
     Route: 037
     Dates: start: 20070408, end: 20070411
  4. DULOXETINE (DULOXETINE) [Concomitant]
  5. OXYCODONE HCL [Concomitant]
  6. IMIPRAMINE [Concomitant]

REACTIONS (5)
  - DELUSION [None]
  - DYSPHASIA [None]
  - HALLUCINATION, AUDITORY [None]
  - PARANOIA [None]
  - SPEECH DISORDER [None]
